FAERS Safety Report 7631640-4 (Version None)
Quarter: 2011Q3

REPORT INFORMATION
  Report Type: 
  Country: None (occurrence: None)
  Receive Date: 20110725
  Receipt Date: 20110208
  Transmission Date: 20111222
  Serious: No
  Sender: FDA-Public Use
  Company Number: US-BRISTOL-MYERS SQUIBB COMPANY-15523228

PATIENT
  Age: 77 Year
  Sex: Male

DRUGS (5)
  1. ATENOLOL [Concomitant]
  2. LASIX [Concomitant]
  3. POTASSIUM [Concomitant]
     Dosage: POTASSIUM PILL
  4. COZAAR [Concomitant]
  5. COUMADIN [Suspect]
     Dosage: STARTED SEVERAL YEARS AGO.RESTARTED AND TAKEN IT FOR 1 WEEK

REACTIONS (6)
  - BLOOD URINE PRESENT [None]
  - PROSTATIC DISORDER [None]
  - HEART RATE INCREASED [None]
  - CYSTITIS [None]
  - NAUSEA [None]
  - DIARRHOEA [None]
